FAERS Safety Report 15531533 (Version 1)
Quarter: 2018Q4

REPORT INFORMATION
  Report Type: Report from Study
  Country: US (occurrence: US)
  Receive Date: 20181019
  Receipt Date: 20181019
  Transmission Date: 20190205
  Serious: Yes (Hospitalization, Other)
  Sender: FDA-Public Use
  Company Number: US-BRISTOL-MYERS SQUIBB COMPANY-BMS-2018-096831

PATIENT
  Age: 68 Year
  Sex: Female
  Weight: 65 kg

DRUGS (1)
  1. NIVOLUMAB [Suspect]
     Active Substance: NIVOLUMAB
     Indication: CHOLANGIOCARCINOMA
     Dosage: 240 MG, Q2WK
     Route: 040
     Dates: start: 20180914, end: 20181001

REACTIONS (5)
  - Abdominal pain [Unknown]
  - Hypoglycaemia [Unknown]
  - Sinusitis [Recovered/Resolved]
  - Loss of consciousness [Unknown]
  - Hypotension [Recovering/Resolving]

NARRATIVE: CASE EVENT DATE: 20181011
